FAERS Safety Report 4284249-7 (Version None)
Quarter: 2004Q1

REPORT INFORMATION
  Report Type: 
  Country: None (occurrence: None)
  Receive Date: 20040202
  Receipt Date: 20040202
  Transmission Date: 20041129
  Serious: Yes (Other)
  Sender: FDA-Public Use
  Company Number: None

PATIENT
  Age: 45 Year
  Sex: Female

DRUGS (2)
  1. CIPROFLOXACIN 400 MG BAYER [Suspect]
     Indication: PROPHYLAXIS
     Dosage: 400 MG INTRAVENOUS
     Route: 042
  2. CIPROFLOXACIN 400 MG BAYER [Suspect]
     Indication: SURGERY
     Dosage: 400 MG INTRAVENOUS
     Route: 042

REACTIONS (1)
  - INJECTION SITE PRURITUS [None]
